FAERS Safety Report 24070259 (Version 2)
Quarter: 2024Q3

REPORT INFORMATION
  Report Type: Report from Study
  Country: MX (occurrence: MX)
  Receive Date: 20240710
  Receipt Date: 20240710
  Transmission Date: 20241017
  Serious: No
  Sender: ROCHE
  Company Number: MX-ROCHE-3431748

PATIENT
  Sex: Female
  Weight: 70.0 kg

DRUGS (3)
  1. ALECENSA [Suspect]
     Active Substance: ALECTINIB HYDROCHLORIDE
     Indication: Lung neoplasm malignant
     Dosage: SUBSEQUENT THERAPY -  /JAN/2023
     Route: 048
     Dates: start: 20210816
  2. ALECENSA [Suspect]
     Active Substance: ALECTINIB HYDROCHLORIDE
     Route: 048
     Dates: start: 202307
  3. MEMANTINE [Concomitant]
     Active Substance: MEMANTINE

REACTIONS (3)
  - Depressed mood [Unknown]
  - Abdominal pain upper [Unknown]
  - Off label use [Unknown]
